FAERS Safety Report 9059291 (Version 4)
Quarter: 2013Q3

REPORT INFORMATION
  Report Type: Spontaneous
  Country: GB (occurrence: GB)
  Receive Date: 20130211
  Receipt Date: 20130801
  Transmission Date: 20140515
  Serious: Yes (Other)
  Sender: FDA-Public Use
  Company Number: GB-JNJFOC-20130200120

PATIENT
  Age: 79 Year
  Sex: Female
  Weight: 50 kg

DRUGS (2)
  1. STELARA [Suspect]
     Indication: PSORIASIS
     Dosage: LOADING DOSE
     Route: 058
     Dates: start: 20130109, end: 20130116
  2. CYCLOSPORIN [Concomitant]
     Indication: PSORIASIS
     Route: 065
     Dates: start: 20121001

REACTIONS (4)
  - Dermatitis exfoliative [Recovered/Resolved]
  - Orthostatic hypotension [Unknown]
  - Dehydration [Recovered/Resolved]
  - Urinary tract infection [Recovered/Resolved]
